FAERS Safety Report 19620420 (Version 1)
Quarter: 2021Q3

REPORT INFORMATION
  Report Type: Spontaneous
  Country: US (occurrence: US)
  Receive Date: 20210728
  Receipt Date: 20210728
  Transmission Date: 20211014
  Serious: Yes (Other)
  Sender: FDA-Public Use
  Company Number: None

PATIENT
  Age: 42 Year
  Sex: Female

DRUGS (1)
  1. BUPRENORPHINE HCL/NALOXONE HCL [Suspect]
     Active Substance: BUPRENORPHINE\NALOXONE
     Indication: DRUG DEPENDENCE
     Route: 060

REACTIONS (4)
  - Nausea [None]
  - Drug ineffective [None]
  - Vomiting [None]
  - Withdrawal syndrome [None]

NARRATIVE: CASE EVENT DATE: 20210701
